FAERS Safety Report 9248057 (Version 3)
Quarter: 2013Q4

REPORT INFORMATION
  Report Type: Spontaneous
  Country: US (occurrence: US)
  Receive Date: 20130423
  Receipt Date: 20131015
  Transmission Date: 20140711
  Serious: Yes (Hospitalization, Disabling, Other)
  Sender: FDA-Public Use
  Company Number: US-ASTRAZENECA-2013SE27260

PATIENT
  Age: 47 Year
  Sex: Male
  Weight: 81.6 kg

DRUGS (17)
  1. NEXIUM [Suspect]
     Indication: GASTROOESOPHAGEAL REFLUX DISEASE
     Route: 048
     Dates: start: 2002
  2. NEXIUM [Suspect]
     Indication: GASTROOESOPHAGEAL REFLUX DISEASE
     Route: 048
     Dates: start: 2003
  3. NEXIUM [Suspect]
     Indication: GASTROOESOPHAGEAL REFLUX DISEASE
     Route: 048
     Dates: start: 20030917
  4. PRILOSEC [Suspect]
     Dosage: 1-2 X DAILY
     Route: 048
  5. PROTONIX [Concomitant]
     Dosage: 1-2 X DAILY
  6. PREVACID [Concomitant]
     Dosage: 1-2 X DAILY
  7. ATENOLOL [Concomitant]
     Indication: HYPERTENSION
     Route: 048
  8. CLONAZEPAM [Concomitant]
     Indication: ADRENAL DISORDER
     Dates: start: 20031020
  9. OXYBUTYNIN [Concomitant]
     Indication: BLADDER STENOSIS
  10. ASA [Concomitant]
  11. SYNTHROID [Concomitant]
     Dates: start: 20040717
  12. CRESTOR [Concomitant]
     Route: 048
     Dates: start: 2007
  13. CRESTOR [Concomitant]
     Route: 048
     Dates: start: 20071019
  14. MORPHINE [Concomitant]
     Dosage: 1 OR 2 TABLETS Q 2 HOURS PRN
     Dates: start: 20030926
  15. DOXYCYCLINE [Concomitant]
     Dates: start: 2007
  16. ALTACE [Concomitant]
     Route: 048
     Dates: start: 20040717
  17. LISINOPRIL [Concomitant]
     Route: 048
     Dates: start: 20080208

REACTIONS (27)
  - Femoral neck fracture [Unknown]
  - Spinal compression fracture [Unknown]
  - Hip fracture [Unknown]
  - Road traffic accident [Unknown]
  - Back injury [Unknown]
  - Cataract [Unknown]
  - Spinal disorder [Unknown]
  - Back pain [Unknown]
  - Type 2 diabetes mellitus [Unknown]
  - Hypothyroidism [Unknown]
  - Osteoporosis [Unknown]
  - Wrist fracture [Unknown]
  - Thoracic vertebral fracture [Unknown]
  - Arthritis [Unknown]
  - Bone disorder [Unknown]
  - Foot fracture [Unknown]
  - Homocystinuria [Unknown]
  - Mastocytosis [Unknown]
  - Angina pectoris [Unknown]
  - Hypothalamo-pituitary disorder [Unknown]
  - Androgen deficiency [Unknown]
  - Osteoarthritis [Unknown]
  - Pituitary infarction [Unknown]
  - Facial bones fracture [Unknown]
  - Sternal injury [Unknown]
  - Sternal fracture [Unknown]
  - Vomiting [Unknown]
